FAERS Safety Report 6228589-0 (Version None)
Quarter: 2009Q2

REPORT INFORMATION
  Report Type: 
  Country: None (occurrence: None)
  Receive Date: 20090612
  Receipt Date: 20090602
  Transmission Date: 20091009
  Serious: Yes (Other)
  Sender: FDA-Public Use
  Company Number: JP-GILEAD-E2B_00000354

PATIENT
  Age: 38 Year
  Sex: Male

DRUGS (5)
  1. HEPSERA [Suspect]
     Indication: VIRAL HEPATITIS CARRIER
     Route: 048
  2. LAMIVUDINE [Suspect]
     Indication: VIRAL HEPATITIS CARRIER
     Route: 048
  3. METHOTREXATE [Concomitant]
  4. PREDNISOLONE [Concomitant]
  5. TACROLIMUS [Concomitant]

REACTIONS (1)
  - NEPHROTIC SYNDROME [None]
